FAERS Safety Report 25353571 (Version 1)
Quarter: 2025Q2

REPORT INFORMATION
  Report Type: Spontaneous
  Country: US (occurrence: US)
  Receive Date: 20250523
  Receipt Date: 20250523
  Transmission Date: 20250717
  Serious: No
  Sender: ARCUTIS
  Company Number: US-ARCUTIS BIOTHERAPEUTICS INC-2025AER000215

PATIENT
  Sex: Female

DRUGS (1)
  1. ZORYVE [Suspect]
     Active Substance: ROFLUMILAST
     Indication: Accidental exposure to product
     Route: 061

REACTIONS (3)
  - Hypoaesthesia oral [Recovered/Resolved]
  - Genital hypoaesthesia [Recovered/Resolved]
  - Accidental exposure to product [Unknown]
